FAERS Safety Report 4679420-6 (Version None)
Quarter: 2005Q2

REPORT INFORMATION
  Report Type: 
  Country: None (occurrence: None)
  Receive Date: 20050602
  Receipt Date: 20050511
  Transmission Date: 20051028
  Serious: No
  Sender: FDA-Public Use
  Company Number: 2005UW07385

PATIENT
  Sex: Female

DRUGS (1)
  1. SEROQUEL [Suspect]
     Route: 048

REACTIONS (2)
  - INTESTINAL FUNCTIONAL DISORDER [None]
  - IRON DEFICIENCY ANAEMIA [None]
